FAERS Safety Report 18051280 (Version 2)
Quarter: 2020Q3

REPORT INFORMATION
  Report Type: Report from Study
  Country: None (occurrence: US)
  Receive Date: 20200721
  Receipt Date: 20200724
  Transmission Date: 20201103
  Serious: Yes (Hospitalization)
  Sender: FDA-Public Use
  Company Number: US-ABBVIE-20K-163-3356817-00

PATIENT
  Age: 77 Year
  Sex: Female

DRUGS (3)
  1. HUMIRA [Suspect]
     Active Substance: ADALIMUMAB
     Indication: CROHN^S DISEASE
     Route: 058
     Dates: start: 2017
  2. METHOTREXATE. [Concomitant]
     Active Substance: METHOTREXATE
     Indication: CROHN^S DISEASE
  3. ZYRTEC [Concomitant]
     Active Substance: CETIRIZINE HYDROCHLORIDE
     Indication: HYPERSENSITIVITY

REACTIONS (7)
  - Jaw fracture [Unknown]
  - Hypoaesthesia oral [Recovering/Resolving]
  - Fall [Recovered/Resolved]
  - Loss of consciousness [Recovered/Resolved]
  - Lip swelling [Recovering/Resolving]
  - Swelling face [Recovering/Resolving]
  - Hypoaesthesia [Not Recovered/Not Resolved]

NARRATIVE: CASE EVENT DATE: 20200320
